FAERS Safety Report 8780285 (Version 1)
Quarter: 2012Q4

REPORT INFORMATION
  Report Type: Spontaneous
  Country: CH (occurrence: None)
  Receive Date: 20120829
  Receipt Date: 20120829
  Transmission Date: 20130627
  Serious: Yes (Death, Other)
  Sender: FDA-Public Use
  Company Number: FK201202479

PATIENT
  Age: 71 Year
  Sex: Female

DRUGS (1)
  1. METHOTREXATE [Suspect]
     Indication: RHEUMATOID ARTHRITIS

REACTIONS (17)
  - Pneumonitis [None]
  - Productive cough [None]
  - Chills [None]
  - Fall [None]
  - Loss of consciousness [None]
  - Pulmonary oedema [None]
  - Vasculitis [None]
  - Lymphadenopathy [None]
  - Bronchitis chronic [None]
  - Aphthous stomatitis [None]
  - Pulmonary fibrosis [None]
  - Arteriosclerosis [None]
  - Cardiac hypertrophy [None]
  - Arteriosclerosis coronary artery [None]
  - Myocardial fibrosis [None]
  - Right ventricular failure [None]
  - Pulmonary granuloma [None]
